FAERS Safety Report 22114814 (Version 1)
Quarter: 2023Q1

REPORT INFORMATION
  Report Type: Spontaneous
  Country: US (occurrence: None)
  Receive Date: 20230317
  Receipt Date: 20230317
  Transmission Date: 20230418
  Serious: No
  Sender: FDA-Public Use
  Company Number: None

PATIENT
  Age: 42 Year
  Sex: Male

DRUGS (1)
  1. OLUMIANT [Suspect]
     Active Substance: BARICITINIB
     Indication: Alopecia areata
     Dosage: TAKE 1 TABLET BY MOUTH DAILY  AS DIRECTED        ?
     Route: 048
     Dates: start: 202303

REACTIONS (3)
  - Illness [None]
  - Lower respiratory tract infection [None]
  - Therapy interrupted [None]
